FAERS Safety Report 8969603 (Version 1)
Quarter: 2012Q4

REPORT INFORMATION
  Report Type: 
  Country: US (occurrence: US)
  Receive Date: 20121218
  Receipt Date: 20121218
  Transmission Date: 20130627
  Serious: No
  Sender: FDA-Public Use
  Company Number: US-BRISTOL-MYERS SQUIBB COMPANY-16267619

PATIENT
  Age: 63 Year
  Sex: Male
  Weight: 104.31 kg

DRUGS (3)
  1. ABILIFY [Suspect]
     Indication: BIPOLAR I DISORDER
     Dosage: he was no it about 3 to 7years
     Dates: start: 2007
  2. LEVEMIR [Concomitant]
     Indication: DIABETES MELLITUS
     Dosage: 1df=28 units in the morning
  3. NOVOLOG [Concomitant]
     Indication: DIABETES MELLITUS
     Dosage: 1df=20units after meals

REACTIONS (1)
  - Blood glucose increased [Recovering/Resolving]
